FAERS Safety Report 10526315 (Version 2)
Quarter: 2014Q4

REPORT INFORMATION
  Report Type: Spontaneous
  Country: US (occurrence: US)
  Receive Date: 20141019
  Receipt Date: 20141216
  Transmission Date: 20150528
  Serious: No
  Sender: FDA-Public Use
  Company Number: US-TEVA-510457USA

PATIENT
  Sex: Male

DRUGS (14)
  1. ALLOPURINOL. [Concomitant]
     Active Substance: ALLOPURINOL
  2. JANUVIA [Concomitant]
     Active Substance: SITAGLIPTIN PHOSPHATE
     Route: 048
  3. KYTRIL [Concomitant]
     Active Substance: GRANISETRON HYDROCHLORIDE
     Dosage: DAY 1 AND DAY 2 OF EACH CYCLE
  4. ASA [Concomitant]
     Active Substance: ASPIRIN
     Dosage: 325 (UNITS NOT PROVIDED)
     Route: 048
  5. COLCRYS [Concomitant]
     Active Substance: COLCHICINE
     Route: 048
  6. TREANDA [Suspect]
     Active Substance: BENDAMUSTINE HYDROCHLORIDE
     Route: 042
     Dates: start: 20141007
  7. LANTUS [Concomitant]
     Active Substance: INSULIN GLARGINE
     Dosage: 42 UNITS
  8. DEXAMETHASONE. [Concomitant]
     Active Substance: DEXAMETHASONE
     Dosage: DAY 1 ANDN DAY 2 OF EACH CYCLE
  9. DIPHENHYDRAMINE [Concomitant]
     Active Substance: DIPHENHYDRAMINE
     Dosage: DAY 1
  10. NEURONTIN [Concomitant]
     Active Substance: GABAPENTIN
     Dosage: 900 MILLIGRAM DAILY;
     Route: 048
  11. PRINZIDE [Concomitant]
     Active Substance: HYDROCHLOROTHIAZIDE\LISINOPRIL
     Dosage: 20 - 12.5MG
     Route: 048
  12. TREANDA [Suspect]
     Active Substance: BENDAMUSTINE HYDROCHLORIDE
     Indication: CHRONIC LYMPHOCYTIC LEUKAEMIA
     Route: 042
     Dates: start: 20140917
  13. RITUXIMAB [Concomitant]
     Active Substance: RITUXIMAB
     Dosage: DAY 1 OF EACH CYCLE
  14. CELEBREX [Concomitant]
     Active Substance: CELECOXIB
     Route: 048

REACTIONS (5)
  - Rash generalised [Recovered/Resolved]
  - Rash macular [Recovered/Resolved]
  - Urticaria [Recovered/Resolved]
  - Rash erythematous [Recovered/Resolved]
  - Rash [Recovered/Resolved]

NARRATIVE: CASE EVENT DATE: 20140917
